FAERS Safety Report 7460781-X (Version None)
Quarter: 2011Q2

REPORT INFORMATION
  Report Type: 
  Country: None (occurrence: None)
  Receive Date: 20110505
  Receipt Date: 20110426
  Transmission Date: 20111010
  Serious: Yes (Death, Hospitalization)
  Sender: FDA-Public Use
  Company Number: PHHO2011US03684

PATIENT
  Sex: Female
  Weight: 76.36 kg

DRUGS (2)
  1. AFINITOR [Suspect]
     Indication: GLIOBLASTOMA
     Dosage: 70 MG, UNK
     Route: 048
     Dates: start: 20110110, end: 20110207
  2. TEMOZOLOMIDE [Suspect]
     Indication: GLIOBLASTOMA
     Dosage: 75 MG/M2, UNK
     Route: 048
     Dates: start: 20110110, end: 20110211

REACTIONS (5)
  - STOMATITIS [None]
  - HYPOTENSION [None]
  - NEOPLASM MALIGNANT [None]
  - DEHYDRATION [None]
  - ASTHENIA [None]
